FAERS Safety Report 4828085-9 (Version None)
Quarter: 2005Q4

REPORT INFORMATION
  Report Type: 
  Country: None (occurrence: None)
  Receive Date: 20051115
  Receipt Date: 20050908
  Transmission Date: 20060501
  Serious: No
  Sender: FDA-Public Use
  Company Number: GBWYE965108SEP05

PATIENT
  Sex: Female

DRUGS (6)
  1. ENBREL [Suspect]
     Indication: RHEUMATOID ARTHRITIS
     Dosage: UNKNOWN
     Route: 058
     Dates: start: 20050726
  2. METHOTREXATE [Suspect]
     Route: 048
     Dates: start: 19980101
  3. ORUVAIL [Concomitant]
     Route: 065
     Dates: start: 19980101
  4. LANSOPRAZOLE [Concomitant]
     Route: 065
     Dates: start: 19980101
  5. CO-PROXAMOL [Concomitant]
     Dates: start: 19980101
  6. METHYLPREDNISOLONE ACETATE [Concomitant]
     Dates: end: 20050401

REACTIONS (1)
  - DEEP VEIN THROMBOSIS [None]
